FAERS Safety Report 14868338 (Version 4)
Quarter: 2018Q3

REPORT INFORMATION
  Report Type: Report from Study
  Country: FR (occurrence: FR)
  Receive Date: 20180509
  Receipt Date: 20180702
  Transmission Date: 20181010
  Serious: Yes (Hospitalization)
  Sender: FDA-Public Use
  Company Number: FR-ROCHE-2099597

PATIENT
  Age: 58 Year
  Sex: Male
  Weight: 85 kg

DRUGS (19)
  1. SOLU?MEDROL [Concomitant]
     Active Substance: METHYLPREDNISOLONE SODIUM SUCCINATE
     Indication: PREMEDICATION
     Dosage: EVERY 3 CYCLES
     Route: 058
     Dates: start: 20180301
  2. ZOPHREN [Concomitant]
     Active Substance: ONDANSETRON
     Indication: PREMEDICATION
     Dosage: EVERY 3 CYCLES
     Route: 048
     Dates: start: 20180301
  3. IBRITUMOMAB TIUXETAN [Concomitant]
     Active Substance: IBRITUMOMAB TIUXETAN
     Route: 065
     Dates: start: 20140808, end: 20140808
  4. CC?122 [Suspect]
     Active Substance: INVESTIGATIONAL PRODUCT
     Route: 048
     Dates: start: 20170426
  5. DACRYOSERUM [Concomitant]
     Active Substance: BORIC ACID\SODIUM BORATE
     Indication: CONJUNCTIVITIS
     Dosage: 3 DOSES
     Route: 047
     Dates: start: 20180201, end: 20180227
  6. DOXORUBICIN [Concomitant]
     Active Substance: DOXORUBICIN
     Route: 065
     Dates: start: 20140104, end: 20140306
  7. VINCRISTINE [Concomitant]
     Active Substance: VINCRISTINE
     Route: 065
     Dates: start: 20140104, end: 20140306
  8. MELPHALAN. [Concomitant]
     Active Substance: MELPHALAN
     Route: 065
     Dates: start: 20140819, end: 20140819
  9. RITUXIMAB. [Suspect]
     Active Substance: RITUXIMAB
     Indication: B-CELL LYMPHOMA
     Dosage: ON DAY 8 OF CYCLE 1, MOST RECENT DOSE ON 01/MAR/2018, DAY 1 IN CYCLE 2 AND ONWARDS
     Route: 042
     Dates: start: 20161019
  10. BILASKA [Concomitant]
     Active Substance: BILASTINE
     Indication: CONJUNCTIVITIS
     Route: 048
     Dates: start: 20180119, end: 20180227
  11. CYCLOPHOSPHAMIDE. [Concomitant]
     Active Substance: CYCLOPHOSPHAMIDE
     Route: 065
     Dates: start: 20140104, end: 20140306
  12. AMIFOSTINE. [Concomitant]
     Active Substance: AMIFOSTINE
     Route: 065
     Dates: start: 20140819, end: 20140819
  13. RITUXIMAB. [Suspect]
     Active Substance: RITUXIMAB
     Dosage: DAY 1 IN CYCLE 2 AND ONWARD
     Route: 042
     Dates: start: 20180301, end: 20180328
  14. ETOPOSIDE. [Concomitant]
     Active Substance: ETOPOSIDE
     Route: 065
     Dates: start: 20140707, end: 20140709
  15. CC?122 [Suspect]
     Active Substance: INVESTIGATIONAL PRODUCT
     Indication: B-CELL LYMPHOMA
     Dosage: 5/7 D
     Route: 048
     Dates: start: 20161012, end: 20180325
  16. POLARAMINE [Concomitant]
     Active Substance: DEXCHLORPHENIRAMINE MALEATE
     Indication: PREMEDICATION
     Route: 058
     Dates: start: 20180301
  17. PREDNISONE. [Concomitant]
     Active Substance: PREDNISONE
     Route: 065
     Dates: start: 20140103, end: 20140306
  18. CYTARABINE. [Concomitant]
     Active Substance: CYTARABINE
     Route: 065
     Dates: start: 20140818, end: 20140818
  19. TAZEMETOSTAT [Concomitant]
     Active Substance: TAZEMETOSTAT
     Route: 065
     Dates: start: 20161015, end: 20161025

REACTIONS (1)
  - Progressive multifocal leukoencephalopathy [Not Recovered/Not Resolved]

NARRATIVE: CASE EVENT DATE: 20180317
